FAERS Safety Report 9341331 (Version 1)
Quarter: 2013Q2

REPORT INFORMATION
  Report Type: Spontaneous
  Country: US (occurrence: None)
  Receive Date: 20130610
  Receipt Date: 20130610
  Transmission Date: 20140414
  Serious: Yes (Other)
  Sender: FDA-Public Use
  Company Number: None

PATIENT
  Sex: 0

DRUGS (2)
  1. CYMBALTA [Suspect]
     Indication: FIBROMYALGIA
  2. CYMBALTA [Suspect]

REACTIONS (3)
  - Drug withdrawal syndrome [None]
  - Nausea [None]
  - Ear discomfort [None]
